FAERS Safety Report 4357467-7 (Version None)
Quarter: 2004Q2

REPORT INFORMATION
  Report Type: 
  Country: None (occurrence: None)
  Receive Date: 20040510
  Receipt Date: 20040429
  Transmission Date: 20050107
  Serious: Yes (Hospitalization)
  Sender: FDA-Public Use
  Company Number: 2004210971JP

PATIENT
  Age: 71 Year
  Sex: Female

DRUGS (3)
  1. SELEGILIN NM (SELEGILINE HYDROCHLORIDE) TABLET [Suspect]
     Indication: PARKINSON'S DISEASE
     Dosage: 2.5 MG/DAY, ORAL
     Route: 048
  2. CABERGOLINE [Suspect]
     Indication: PARKINSON'S DISEASE
     Dosage: 3 MG/DAY, ORAL
     Route: 048
  3. LEVODOPA [Concomitant]

REACTIONS (3)
  - AGGRESSION [None]
  - DELIRIUM [None]
  - HALLUCINATION [None]
